FAERS Safety Report 4505485-8 (Version None)
Quarter: 2004Q4

REPORT INFORMATION
  Report Type: 
  Country: None (occurrence: None)
  Receive Date: 20041118
  Receipt Date: 20041118
  Transmission Date: 20050328
  Serious: Yes (Hospitalization, Other)
  Sender: FDA-Public Use
  Company Number: None

PATIENT
  Sex: Female
  Weight: 63.5036 kg

DRUGS (9)
  1. METFORMIN HCL [Suspect]
     Indication: DIABETES MELLITUS
     Dosage: TWICE DAILY /PO
     Route: 048
     Dates: start: 20031201
  2. DIGITEK 250  MCG [Suspect]
     Indication: CARDIAC DISORDER
     Dosage: ONCE DAILY /PO
     Route: 048
     Dates: start: 20031201
  3. .. [Concomitant]
  4. ... [Concomitant]
  5. ... [Concomitant]
  6. ... [Concomitant]
  7. ... [Concomitant]
  8. ... [Concomitant]
  9. ... [Concomitant]

REACTIONS (4)
  - PALPITATIONS [None]
  - PHARMACEUTICAL PRODUCT COMPLAINT [None]
  - PRURITUS [None]
  - SKIN BURNING SENSATION [None]
